FAERS Safety Report 9994573 (Version 2)
Quarter: 2014Q1

REPORT INFORMATION
  Report Type: Report from Study
  Country: US (occurrence: US)
  Receive Date: 20140311
  Receipt Date: 20140320
  Transmission Date: 20141002
  Serious: Yes (Other)
  Sender: FDA-Public Use
  Company Number: US-ROCHE-1361131

PATIENT
  Age: 60 Year
  Sex: Female

DRUGS (4)
  1. HERCEPTIN [Suspect]
     Indication: BREAST CANCER METASTATIC
     Dosage: 1L DOSE
     Route: 065
  2. KADCYLA [Suspect]
     Indication: BREAST CANCER METASTATIC
     Dosage: 2L DOSE
     Route: 065
  3. XELODA [Suspect]
     Indication: BREAST CANCER METASTATIC
     Dosage: 1L DOSE
     Route: 065
  4. TAXOTERE [Concomitant]

REACTIONS (2)
  - Febrile neutropenia [Unknown]
  - Performance status decreased [Unknown]
